FAERS Safety Report 5234545-1 (Version None)
Quarter: 2007Q1

REPORT INFORMATION
  Report Type: 
  Country: None (occurrence: None)
  Receive Date: 20070209
  Receipt Date: 20070126
  Transmission Date: 20070707
  Serious: Yes (Hospitalization)
  Sender: FDA-Public Use
  Company Number: US-ELI_LILLY_AND_COMPANY-US200701006263

PATIENT
  Age: 12 Year

DRUGS (1)
  1. STRATTERA [Suspect]
     Dosage: UNK MG, UNK
     Route: 048

REACTIONS (1)
  - LIVER FUNCTION TEST ABNORMAL [None]
